FAERS Safety Report 9145878 (Version 1)
Quarter: 2013Q1

REPORT INFORMATION
  Report Type: Report from Study
  Country: FR (occurrence: FR)
  Receive Date: 20130307
  Receipt Date: 20130307
  Transmission Date: 20140127
  Serious: Yes (Death, Other)
  Sender: FDA-Public Use
  Company Number: FR-GENZYME-CLOF-1002540

PATIENT
  Age: 55 Year
  Sex: Female

DRUGS (8)
  1. EVOLTRA [Suspect]
     Indication: ACUTE MYELOID LEUKAEMIA
     Dosage: 30 MG/M2, UNK
     Route: 041
     Dates: start: 20110818, end: 20110822
  2. EVOLTRA [Suspect]
     Indication: BONE MARROW CONDITIONING REGIMEN
  3. THYMOGLOBULINE [Suspect]
     Indication: BONE MARROW CONDITIONING REGIMEN
     Dosage: UNK
     Route: 065
     Dates: start: 2011
  4. ARACYTINE [Suspect]
     Indication: ACUTE MYELOID LEUKAEMIA
     Dosage: UNK
     Route: 065
     Dates: start: 2011
  5. ARACYTINE [Suspect]
     Indication: BONE MARROW CONDITIONING REGIMEN
  6. ENDOXAN [Suspect]
     Indication: BONE MARROW CONDITIONING REGIMEN
     Dosage: UNK
     Route: 065
     Dates: start: 2011
  7. BUSILVEX [Suspect]
     Indication: BONE MARROW CONDITIONING REGIMEN
     Dosage: UNK
     Route: 065
     Dates: start: 2011
  8. DONOR LYMPHOCYTE INFUSION [Suspect]
     Indication: PRODUCT USED FOR UNKNOWN INDICATION
     Dosage: UNK
     Route: 065
     Dates: start: 20120224

REACTIONS (11)
  - Acute myeloid leukaemia [Fatal]
  - Acute graft versus host disease in intestine [Recovered/Resolved]
  - Graft versus host disease in intestine [Recovered/Resolved]
  - Ileitis [Recovered/Resolved]
  - Arthritis bacterial [Fatal]
  - Pseudomonal sepsis [Recovered/Resolved]
  - Lobar pneumonia [Recovered/Resolved]
  - Neutropenia [Recovered/Resolved]
  - Enterobacter infection [Recovered/Resolved]
  - Aspergillus infection [Fatal]
  - Thrombophlebitis septic [Fatal]
